FAERS Safety Report 7388634-6 (Version None)
Quarter: 2011Q2

REPORT INFORMATION
  Report Type: 
  Country: None (occurrence: None)
  Receive Date: 20110401
  Receipt Date: 20110318
  Transmission Date: 20111010
  Serious: Yes (Other)
  Sender: FDA-Public Use
  Company Number: BR-GENENTECH-308582

PATIENT
  Sex: Male
  Weight: 71 kg

DRUGS (9)
  1. INSULIN [Concomitant]
     Indication: PRODUCT USED FOR UNKNOWN INDICATION
     Dosage: 26 IU, QD
  2. INSULIN [Concomitant]
     Dosage: 12 IU, QD
  3. TOCILIZUMAB [Suspect]
     Indication: RHEUMATOID ARTHRITIS
     Dosage: 8 MG/KG, Q28D
     Route: 065
     Dates: start: 20100928, end: 20110201
  4. PREDNISONE [Suspect]
     Indication: PRODUCT USED FOR UNKNOWN INDICATION
     Dosage: UNK TABLET, UNK
     Route: 065
  5. RITUXIMAB [Suspect]
     Indication: RHEUMATOID ARTHRITIS
     Dosage: 1000 MG, UNK
     Route: 065
     Dates: start: 20090101, end: 20090101
  6. HYGROTON [Concomitant]
     Indication: PRODUCT USED FOR UNKNOWN INDICATION
     Dosage: 12.5 MG, UNK
  7. INSULIN [Concomitant]
     Dosage: 16 IU, QD
  8. ENALAPRIL MALEATE [Concomitant]
     Indication: PRODUCT USED FOR UNKNOWN INDICATION
     Dosage: UNK TABLET, UNK
  9. HUMALOG [Concomitant]
     Indication: PRODUCT USED FOR UNKNOWN INDICATION
     Dosage: 12 IU, UNK

REACTIONS (10)
  - BLOOD DISORDER [None]
  - FEELING OF DESPAIR [None]
  - VISUAL ACUITY REDUCED [None]
  - DRUG INEFFECTIVE [None]
  - MOVEMENT DISORDER [None]
  - CATARACT [None]
  - BLOOD GLUCOSE ABNORMAL [None]
  - EYE INFLAMMATION [None]
  - RHEUMATOID ARTHRITIS [None]
  - EYE DISORDER [None]
